FAERS Safety Report 13747584 (Version 2)
Quarter: 2017Q3

REPORT INFORMATION
  Report Type: Spontaneous
  Country: US (occurrence: US)
  Receive Date: 20170712
  Receipt Date: 20170725
  Transmission Date: 20171127
  Serious: Yes (Hospitalization, Other)
  Sender: FDA-Public Use
  Company Number: LB-IMPAX LABORATORIES, INC-2017-IPXL-02033

PATIENT
  Age: 44 Year
  Sex: Female

DRUGS (5)
  1. HYDROCORTISONE. [Suspect]
     Active Substance: HYDROCORTISONE
     Indication: ANAPHYLACTIC REACTION
     Dosage: UNK, 1 ONLY (ONE TIME DOSE)
     Route: 042
  2. ADRENACLICK [Suspect]
     Active Substance: EPINEPHRINE
     Indication: ANAPHYLACTIC REACTION
     Dosage: 50-100 ?G INTERMITTENT BOLUSES, UNK
     Route: 042
  3. DIPHENHYDRAMINE. [Suspect]
     Active Substance: DIPHENHYDRAMINE
     Indication: ANAPHYLACTIC REACTION
     Dosage: UNK, 1 ONLY (1 TIME DOSE)
     Route: 042
  4. ADRENACLICK [Suspect]
     Active Substance: EPINEPHRINE
     Indication: BRONCHOSPASM
     Dosage: 50 ?G, 1 TIME DOSE
     Route: 042
  5. ALBUTEROL. [Suspect]
     Active Substance: ALBUTEROL
     Indication: BRONCHOSPASM
     Dosage: NEBULIZED, UNK
     Route: 050

REACTIONS (2)
  - Drug ineffective [Recovering/Resolving]
  - Stress cardiomyopathy [Recovering/Resolving]
